FAERS Safety Report 23204450 (Version 2)
Quarter: 2023Q4

REPORT INFORMATION
  Report Type: Report from Study
  Country: US (occurrence: US)
  Receive Date: 20231120
  Receipt Date: 20231121
  Transmission Date: 20240109
  Serious: No
  Sender: FDA-Public Use
  Company Number: US-002147023-NVSC2023US244467

PATIENT
  Sex: Female

DRUGS (2)
  1. TRIAMCINOLONE [Suspect]
     Active Substance: TRIAMCINOLONE
     Indication: Rash
     Dosage: UNK
     Route: 065
  2. TRIAMCINOLONE [Suspect]
     Active Substance: TRIAMCINOLONE
     Indication: Hidradenitis

REACTIONS (7)
  - Skin abrasion [Unknown]
  - Hidradenitis [Unknown]
  - Drug ineffective [Unknown]
  - Rash [Unknown]
  - Urticaria [Unknown]
  - Rash pruritic [Unknown]
  - Rash erythematous [Unknown]
